FAERS Safety Report 8088128-9 (Version None)
Quarter: 2012Q1

REPORT INFORMATION
  Report Type: 
  Country: None (occurrence: None)
  Receive Date: 20120131
  Receipt Date: 20120123
  Transmission Date: 20120608
  Serious: No
  Sender: FDA-Public Use
  Company Number: US-BIOGENIDEC-2011BI025951

PATIENT
  Age: 53 Year
  Sex: Female

DRUGS (1)
  1. TYSABRI [Suspect]
     Indication: MULTIPLE SCLEROSIS
     Route: 042
     Dates: start: 20110301

REACTIONS (8)
  - MEMORY IMPAIRMENT [None]
  - DRUG INEFFECTIVE [None]
  - ROAD TRAFFIC ACCIDENT [None]
  - BALANCE DISORDER [None]
  - FEELING COLD [None]
  - GAIT DISTURBANCE [None]
  - ATTENTION DEFICIT/HYPERACTIVITY DISORDER [None]
  - BURNS SECOND DEGREE [None]
